FAERS Safety Report 19953804 (Version 2)
Quarter: 2021Q4

REPORT INFORMATION
  Report Type: Spontaneous
  Country: ES (occurrence: ES)
  Receive Date: 20211013
  Receipt Date: 20211027
  Transmission Date: 20220303
  Serious: Yes (Other)
  Sender: FDA-Public Use
  Company Number: ES-BAXTER-2021BAX011680

PATIENT
  Age: 7 Year
  Sex: Male

DRUGS (35)
  1. CYTARABINE [Suspect]
     Active Substance: CYTARABINE
     Indication: Acute lymphocytic leukaemia refractory
     Dosage: UNK (FIRST CYCLE)
     Route: 065
  2. CYTARABINE [Suspect]
     Active Substance: CYTARABINE
     Indication: T-cell type acute leukaemia
  3. MITOXANTRONE [Suspect]
     Active Substance: MITOXANTRONE HYDROCHLORIDE
     Indication: Acute lymphocytic leukaemia refractory
     Dosage: UNK (SECOND CYCLE OF CHEMOTHERAPY)
     Route: 065
  4. MITOXANTRONE [Suspect]
     Active Substance: MITOXANTRONE HYDROCHLORIDE
     Indication: T-cell type acute leukaemia
  5. DEXAMETHASONE [Suspect]
     Active Substance: DEXAMETHASONE
     Indication: Acute lymphocytic leukaemia refractory
     Dosage: UNK, (FIRST CYCLE)
     Route: 065
  6. DEXAMETHASONE [Suspect]
     Active Substance: DEXAMETHASONE
     Indication: T-cell type acute leukaemia
     Dosage: UNK, (SECOND CYCLE)
  7. METHOTREXATE [Suspect]
     Active Substance: METHOTREXATE
     Indication: Acute lymphocytic leukaemia refractory
     Dosage: UNK (SECOND CYCLE OF CHEMOTHERAPY)
     Route: 065
  8. TENIPOSIDE [Suspect]
     Active Substance: TENIPOSIDE
     Indication: Acute lymphocytic leukaemia refractory
     Dosage: UNK (FIRST CYCLE)
     Route: 065
  9. TENIPOSIDE [Suspect]
     Active Substance: TENIPOSIDE
     Indication: T-cell type acute leukaemia
  10. GENOXAL [Suspect]
     Active Substance: CYCLOPHOSPHAMIDE
     Indication: Acute lymphocytic leukaemia refractory
     Dosage: UNK (SECOND CYCLE OF CHEMOTHERAPY)
     Route: 065
  11. GENOXAL [Suspect]
     Active Substance: CYCLOPHOSPHAMIDE
     Dosage: UNK (INDUCTION RE-MISSION THERAPY)
     Route: 065
  12. ASPARAGINASE [Suspect]
     Active Substance: ASPARAGINASE
     Indication: Acute lymphocytic leukaemia refractory
     Dosage: UNK (FIRST CYCLE)
     Route: 065
  13. ASPARAGINASE [Suspect]
     Active Substance: ASPARAGINASE
     Indication: T-cell type acute leukaemia
     Dosage: UNK (SECOND CYCLE OF CHEMOTHERAPY)
     Route: 065
  14. VINCRISTINE [Suspect]
     Active Substance: VINCRISTINE
     Indication: T-cell type acute leukaemia
     Dosage: UNK (INDUCTION RE-MISSION THERAPY)
     Route: 065
  15. VINCRISTINE [Suspect]
     Active Substance: VINCRISTINE
     Dosage: UNK (SECOND CYCLE OF CHEMOTHERAPY)
  16. PREDNISONE [Suspect]
     Active Substance: PREDNISONE
     Indication: T-cell type acute leukaemia
     Dosage: UNK (INDUCTION RE-MISSION THERAPY)
     Route: 065
  17. DAUNORUBICIN HYDROCHLORIDE [Suspect]
     Active Substance: DAUNORUBICIN HYDROCHLORIDE
     Indication: T-cell type acute leukaemia
     Dosage: INDUCTION RE-MISSION THERAPY
     Route: 065
  18. VINCRISTINE SULFATE [Suspect]
     Active Substance: VINCRISTINE SULFATE
     Indication: T-cell type acute leukaemia
     Dosage: UNK, CYCLIC
  19. CYCLOPHOSPHAMIDE [Suspect]
     Active Substance: CYCLOPHOSPHAMIDE
     Indication: T-cell type acute leukaemia
     Dosage: UNK, CYCLIC
  20. METHOTREXATE SODIUM [Suspect]
     Active Substance: METHOTREXATE SODIUM
     Indication: T-cell type acute leukaemia
     Dosage: UNK, CYCLIC
  21. CEFTAZIDIME [Concomitant]
     Active Substance: CEFTAZIDIME
     Indication: Evidence based treatment
     Dosage: UNK
     Route: 042
  22. AMIKACIN [Concomitant]
     Active Substance: AMIKACIN
     Indication: Beta haemolytic streptococcal infection
     Dosage: UNK
     Route: 048
  23. AMIKACIN [Concomitant]
     Active Substance: AMIKACIN
     Indication: Candida infection
     Dosage: UNK
  24. AMIKACIN [Concomitant]
     Active Substance: AMIKACIN
     Indication: Pseudomonas infection
     Dosage: UNK
  25. AMIKACIN [Concomitant]
     Active Substance: AMIKACIN
     Indication: Culture stool
  26. AMIKACIN [Concomitant]
     Active Substance: AMIKACIN
     Indication: Evidence based treatment
     Dosage: UNK
     Route: 042
  27. VANCOMYCIN [Concomitant]
     Active Substance: VANCOMYCIN
     Indication: Beta haemolytic streptococcal infection
     Dosage: UNK
     Route: 048
  28. VANCOMYCIN [Concomitant]
     Active Substance: VANCOMYCIN
     Indication: Evidence based treatment
     Dosage: UNK
  29. VANCOMYCIN [Concomitant]
     Active Substance: VANCOMYCIN
     Indication: Culture stool
     Dosage: UNK
  30. AMPHOTERICIN B [Concomitant]
     Active Substance: AMPHOTERICIN B
     Indication: Pseudomonas infection
     Dosage: UNK (PROGRESSIVELY INCREASED TO 1.2 MG/KG/DAY IN 5 DAYS)
     Route: 042
  31. AMPHOTERICIN B [Concomitant]
     Active Substance: AMPHOTERICIN B
     Indication: Beta haemolytic streptococcal infection
     Dosage: UNK
     Route: 048
  32. AMPHOTERICIN B [Concomitant]
     Active Substance: AMPHOTERICIN B
     Indication: Candida infection
     Dosage: UNK
  33. AMPHOTERICIN B [Concomitant]
     Active Substance: AMPHOTERICIN B
     Indication: Culture stool
  34. VANCOMYCIN [Concomitant]
     Active Substance: VANCOMYCIN
     Indication: Pseudomonas infection
     Dosage: PROGRESSIVELY INCREASED TO 1.2 MG/KG/DAY IN 5 DAYS
     Route: 042
  35. AMIKACIN [Concomitant]
     Active Substance: AMIKACIN
     Indication: Pseudomonas infection
     Dosage: UNK

REACTIONS (6)
  - Pancytopenia [Unknown]
  - Drug ineffective [Unknown]
  - Pseudomonas infection [Unknown]
  - Neutropenia [Unknown]
  - Streptococcal infection [Unknown]
  - Candida infection [Unknown]
